FAERS Safety Report 7492671-0 (Version None)
Quarter: 2011Q2

REPORT INFORMATION
  Report Type: 
  Country: None (occurrence: None)
  Receive Date: 20110519
  Receipt Date: 20110512
  Transmission Date: 20111010
  Serious: Yes (Other)
  Sender: FDA-Public Use
  Company Number: US-US-EMD SERONO, INC.-7053560

PATIENT
  Sex: Female
  Weight: 94 kg

DRUGS (4)
  1. IMITREX [Concomitant]
     Indication: HEADACHE
  2. REBIF [Suspect]
     Route: 058
     Dates: start: 20110408
  3. REBIF [Suspect]
     Route: 058
     Dates: start: 20110504
  4. REBIF [Suspect]
     Indication: RELAPSING-REMITTING MULTIPLE SCLEROSIS
     Route: 058
     Dates: start: 20110228, end: 20110408

REACTIONS (2)
  - IMMUNOSUPPRESSION [None]
  - PNEUMONIA [None]
